FAERS Safety Report 7305589-0 (Version None)
Quarter: 2011Q1

REPORT INFORMATION
  Report Type: 
  Country: None (occurrence: None)
  Receive Date: 20110222
  Receipt Date: 20110218
  Transmission Date: 20110831
  Serious: Yes (Death)
  Sender: FDA-Public Use
  Company Number: US-ASTRAZENECA-2011SE09489

PATIENT
  Age: 56 Year
  Sex: Male
  Weight: 52.2 kg

DRUGS (2)
  1. LEXAPRO [Concomitant]
     Indication: DEPRESSION
  2. SEROQUEL XR [Suspect]
     Indication: DEPRESSION
     Route: 048
     Dates: start: 20100901, end: 20110120

REACTIONS (1)
  - COMPLETED SUICIDE [None]
